FAERS Safety Report 8011046-9 (Version None)
Quarter: 2011Q4

REPORT INFORMATION
  Report Type: 
  Country: None (occurrence: None)
  Receive Date: 20111222
  Receipt Date: 20111207
  Transmission Date: 20120403
  Serious: Yes (Hospitalization)
  Sender: FDA-Public Use
  Company Number: TPA2011A06681

PATIENT
  Age: 76 Year
  Sex: Male

DRUGS (4)
  1. ADENURIC (FEBUXOSTAT) [Suspect]
     Indication: HYPERURICAEMIA
     Dosage: 80 MG (80 MG, 1 -1D) ORAL
     Route: 048
     Dates: start: 20110516, end: 20110531
  2. IRBESARTAN AND HYDROCHLOROTHIAZIDE [Suspect]
     Dosage: 300/25 MG DIE (300/25 MG DIE) ORAL
     Route: 048
  3. ASPIRIN [Concomitant]
  4. AMARYL [Concomitant]

REACTIONS (4)
  - INSOMNIA [None]
  - AGITATION [None]
  - FATIGUE [None]
  - HYPERTENSIVE CRISIS [None]
